FAERS Safety Report 4978940-4 (Version None)
Quarter: 2006Q2

REPORT INFORMATION
  Report Type: 
  Country: None (occurrence: None)
  Receive Date: 20060419
  Receipt Date: 20060419
  Transmission Date: 20061013
  Serious: Yes (Hospitalization)
  Sender: FDA-Public Use
  Company Number: None

PATIENT
  Sex: Female

DRUGS (17)
  1. ZITHROMAX [Suspect]
     Indication: PNEUMONIA
     Dosage: 250MG  DAILY PO
     Route: 048
     Dates: start: 20060301, end: 20060305
  2. WARFARIN SODIUM [Suspect]
     Indication: AORTIC VALVE REPLACEMENT
     Dosage: 7.5 MG ALTERNATE WITH 5MG EVERY OTHER DAY PO   CHRONIC ANTICOAGULATION
     Route: 048
  3. LORTAB [Concomitant]
  4. COLACE [Concomitant]
  5. BUMEX [Concomitant]
  6. CELEBREX [Concomitant]
  7. DIGOXIN [Concomitant]
  8. IRON [Concomitant]
  9. FOLIC ACID [Concomitant]
  10. HYDROXYCHLOROQUIN [Concomitant]
  11. SYNTHROID [Concomitant]
  12. LISINOPRIL [Concomitant]
  13. METHOTREXATE [Concomitant]
  14. LOPRESSOR [Concomitant]
  15. NPH INSULIN [Concomitant]
  16. ASPIRIN [Concomitant]
  17. BUMEX [Concomitant]

REACTIONS (4)
  - ABDOMINAL PAIN [None]
  - INTERNATIONAL NORMALISED RATIO INCREASED [None]
  - PNEUMONIA [None]
  - PROTHROMBIN TIME PROLONGED [None]
